FAERS Safety Report 6267766-X (Version None)
Quarter: 2009Q3

REPORT INFORMATION
  Report Type: 
  Country: None (occurrence: None)
  Receive Date: 20090714
  Receipt Date: 20090629
  Transmission Date: 20100115
  Serious: Yes (Death)
  Sender: FDA-Public Use
  Company Number: HK-GENENTECH-286087

PATIENT
  Age: 68 Year

DRUGS (3)
  1. AVASTIN [Suspect]
     Indication: LUNG NEOPLASM MALIGNANT
     Dosage: UNK
     Route: 042
  2. ERLOTINIB [Suspect]
     Indication: LUNG NEOPLASM MALIGNANT
     Dosage: UNK
     Route: 065
  3. GEMCITABINE [Suspect]
     Indication: LUNG NEOPLASM MALIGNANT
     Route: 065

REACTIONS (2)
  - MULTI-ORGAN FAILURE [None]
  - THROMBOTIC THROMBOCYTOPENIC PURPURA [None]
